FAERS Safety Report 16775536 (Version 1)
Quarter: 2019Q3

REPORT INFORMATION
  Report Type: Spontaneous
  Country: US (occurrence: US)
  Receive Date: 20190716
  Receipt Date: 20190716
  Transmission Date: 20191005
  Serious: Yes (Death)
  Sender: FDA-Public Use
  Company Number: None

PATIENT
  Age: 35 Year
  Sex: Male

DRUGS (1)
  1. PALIPERIONE 6MG [Suspect]
     Active Substance: PALIPERIDONE
     Indication: SCHIZOPHRENIA
     Route: 048
     Dates: start: 20170531, end: 20170629

REACTIONS (3)
  - Loss of personal independence in daily activities [None]
  - Sleep disorder [None]
  - Product substitution issue [None]

NARRATIVE: CASE EVENT DATE: 20170531
